FAERS Safety Report 11007069 (Version 1)
Quarter: 2015Q2

REPORT INFORMATION
  Report Type: Spontaneous
  Country: US (occurrence: US)
  Receive Date: 20150409
  Receipt Date: 20150409
  Transmission Date: 20150821
  Serious: No
  Sender: FDA-Public Use
  Company Number: US-ALLERGAN-1504057US

PATIENT
  Age: 27 Year
  Sex: Female

DRUGS (2)
  1. LATISSE [Suspect]
     Active Substance: BIMATOPROST
     Indication: HAIR GROWTH ABNORMAL
  2. LATISSE [Suspect]
     Active Substance: BIMATOPROST
     Indication: GROWTH OF EYELASHES
     Dosage: 1-2 GTT
     Route: 061
     Dates: start: 20150227

REACTIONS (4)
  - Off label use [Unknown]
  - Facial paresis [Not Recovered/Not Resolved]
  - Eyelid function disorder [Not Recovered/Not Resolved]
  - Lagophthalmos [Not Recovered/Not Resolved]

NARRATIVE: CASE EVENT DATE: 20150305
